FAERS Safety Report 9882280 (Version 3)
Quarter: 2014Q2

REPORT INFORMATION
  Report Type: Spontaneous
  Country: US (occurrence: US)
  Receive Date: 20140207
  Receipt Date: 20140401
  Transmission Date: 20141212
  Serious: Yes (Death)
  Sender: FDA-Public Use
  Company Number: US-GLAXOSMITHKLINE-A0835469A

PATIENT
  Age: 48 Year
  Sex: Female
  Weight: 126.4 kg

DRUGS (1)
  1. AVANDIA [Suspect]
     Indication: DIABETES MELLITUS
     Dosage: 8MG PER DAY
     Route: 048
     Dates: start: 200008, end: 200210

REACTIONS (2)
  - Cardiac failure congestive [Fatal]
  - Cerebrovascular accident [Unknown]
